FAERS Safety Report 5501919-0 (Version None)
Quarter: 2007Q4

REPORT INFORMATION
  Report Type: 
  Country: None (occurrence: None)
  Receive Date: 20071030
  Receipt Date: 20071017
  Transmission Date: 20080405
  Serious: Yes (Hospitalization)
  Sender: FDA-Public Use
  Company Number: US-ROCHE-461376

PATIENT
  Age: 45 Year
  Sex: Male
  Weight: 68.9 kg

DRUGS (9)
  1. PEG-INTERFERON ALFA 2A (RO 25-8310) [Suspect]
     Route: 058
     Dates: start: 20050822, end: 20060716
  2. RIBAVIRIN [Suspect]
     Route: 048
     Dates: start: 20050822, end: 20060723
  3. BONIVA [Concomitant]
     Dates: start: 20051215
  4. POTASSIUM PHOSPHATES [Concomitant]
     Dates: start: 20051202
  5. MONOSODIUM PHOSPHATE [Concomitant]
     Dates: start: 20060116
  6. NORVASC [Concomitant]
     Dates: start: 20050804
  7. TRAMADOL HCL [Concomitant]
     Dates: start: 20050822
  8. ATACAND [Concomitant]
     Dates: start: 20050721
  9. MOTRIN [Concomitant]
     Dates: start: 20040501

REACTIONS (1)
  - THYROID CANCER METASTATIC [None]
